FAERS Safety Report 13990850 (Version 1)
Quarter: 2017Q3

REPORT INFORMATION
  Report Type: Spontaneous
  Country: FR (occurrence: FR)
  Receive Date: 20170920
  Receipt Date: 20170920
  Transmission Date: 20171128
  Serious: Yes (Hospitalization)
  Sender: FDA-Public Use
  Company Number: FR-ROCHE-1993626

PATIENT
  Age: 54 Year
  Sex: Male
  Weight: 56 kg

DRUGS (5)
  1. CYMEVAN [Suspect]
     Active Substance: GANCICLOVIR
     Dosage: 11. 24 MG/L
     Route: 041
     Dates: start: 20170823
  2. CYMEVAN [Suspect]
     Active Substance: GANCICLOVIR
     Dosage: 2.39 MG/L
     Route: 041
     Dates: start: 20170816
  3. CYMEVAN [Suspect]
     Active Substance: GANCICLOVIR
     Route: 041
     Dates: start: 20170812
  4. VELCADE [Concomitant]
     Active Substance: BORTEZOMIB
     Dosage: SUBSEQUENT DOSES ON 19/JUN/2017 AND 21/JUL/2017.
     Route: 065
     Dates: start: 20170602
  5. CYMEVAN [Suspect]
     Active Substance: GANCICLOVIR
     Indication: CYTOMEGALOVIRUS INFECTION
     Route: 041
     Dates: start: 20170811, end: 20170820

REACTIONS (3)
  - Antiviral drug level above therapeutic [Unknown]
  - Hallucination [Recovered/Resolved with Sequelae]
  - Brief psychotic disorder with marked stressors [Recovered/Resolved with Sequelae]

NARRATIVE: CASE EVENT DATE: 20170814
